FAERS Safety Report 7686095-0 (Version None)
Quarter: 2011Q3

REPORT INFORMATION
  Report Type: 
  Country: None (occurrence: None)
  Receive Date: 20110816
  Receipt Date: 20110811
  Transmission Date: 20111222
  Serious: No
  Sender: FDA-Public Use
  Company Number: US-PFIZER INC-2011185777

PATIENT
  Age: 77 Year
  Sex: Male
  Weight: 87 kg

DRUGS (1)
  1. LYRICA [Suspect]
     Indication: PROPHYLAXIS
     Dosage: 300MG, UNK; ADDITIONAL 100 MG
     Route: 048
     Dates: start: 20110808, end: 20110808

REACTIONS (4)
  - DYSKINESIA [None]
  - TREMOR [None]
  - MOVEMENT DISORDER [None]
  - SOMNOLENCE [None]
